FAERS Safety Report 22519466 (Version 1)
Quarter: 2023Q2

REPORT INFORMATION
  Report Type: Spontaneous
  Country: US (occurrence: None)
  Receive Date: 20230602
  Receipt Date: 20230602
  Transmission Date: 20230722
  Serious: Yes (Life-Threatening, Hospitalization)
  Sender: FDA-Public Use
  Company Number: None

PATIENT
  Age: 68 Year
  Sex: Female
  Weight: 101.25 kg

DRUGS (14)
  1. CLINDAMYCIN [Suspect]
     Active Substance: CLINDAMYCIN
     Indication: Infection
     Dosage: 30 TABLETS EVERY 8 HOURS ORAL
     Route: 048
     Dates: start: 20230519, end: 20230529
  2. ELIQUIS [Concomitant]
     Active Substance: APIXABAN
  3. ATORVASTATIN [Concomitant]
     Active Substance: ATORVASTATIN
  4. METOPROLOL [Concomitant]
     Active Substance: METOPROLOL
  5. FARXIGA [Concomitant]
     Active Substance: DAPAGLIFLOZIN PROPANEDIOL
  6. LISINOPRIL [Concomitant]
     Active Substance: LISINOPRIL
  7. Trazadone prn for sleep [Concomitant]
  8. UNSPECIFIED INGREDIENT [Concomitant]
     Active Substance: UNSPECIFIED INGREDIENT
  9. antihistamine nose spray [Concomitant]
  10. DEVICE [Concomitant]
     Active Substance: DEVICE
  11. TYLENOL EXTRA STRENGTH [Concomitant]
     Active Substance: ACETAMINOPHEN
  12. Magnesium 400 mg x 1 daily [Concomitant]
  13. Blood Builder iron supplement [Concomitant]
  14. Phillips Probiotic [Concomitant]

REACTIONS (1)
  - Paraesthesia oral [None]

NARRATIVE: CASE EVENT DATE: 20230601
